FAERS Safety Report 9859409 (Version 1)
Quarter: 2014Q1

REPORT INFORMATION
  Report Type: Spontaneous
  Country: US (occurrence: US)
  Receive Date: 20140131
  Receipt Date: 20140131
  Transmission Date: 20141002
  Serious: Yes (Hospitalization)
  Sender: FDA-Public Use
  Company Number: US-BAXTER-2014BAX003967

PATIENT
  Sex: Male

DRUGS (2)
  1. DIANEAL LOW CALCIUM [Suspect]
     Indication: RENAL FAILURE CHRONIC
     Route: 033
     Dates: start: 2012, end: 20140122
  2. DIANEAL LOW CALCIUM [Suspect]
     Route: 033
     Dates: start: 2012, end: 20140122

REACTIONS (3)
  - Aneurysm [Recovered/Resolved with Sequelae]
  - Memory impairment [Recovering/Resolving]
  - Hypotension [Recovered/Resolved]
